FAERS Safety Report 21446339 (Version 1)
Quarter: 2022Q4

REPORT INFORMATION
  Report Type: Spontaneous
  Country: GB (occurrence: GB)
  Receive Date: 20221012
  Receipt Date: 20221012
  Transmission Date: 20230112
  Serious: Yes (Disabling, Other)
  Sender: FDA-Public Use
  Company Number: None

PATIENT
  Age: 39 Year
  Sex: Female
  Weight: 81 kg

DRUGS (7)
  1. FLUCONAZOLE [Suspect]
     Active Substance: FLUCONAZOLE
     Dosage: UNK
     Dates: start: 20220928
  2. CLOTRIMAZOLE [Suspect]
     Active Substance: CLOTRIMAZOLE
     Dosage: UNK
     Dates: start: 20220928
  3. AMITRIPTYLINE HYDROCHLORIDE [Concomitant]
     Active Substance: AMITRIPTYLINE HYDROCHLORIDE
     Dosage: 1 DF, DAILY (AT NIGHT)
     Dates: start: 20220720, end: 20220817
  4. FLUCLOXACILLIN [Concomitant]
     Active Substance: FLUCLOXACILLIN
     Dosage: 1 DF, 4X/DAY
     Dates: start: 20220928
  5. LANSOPRAZOLE [Concomitant]
     Active Substance: LANSOPRAZOLE
     Dosage: 1 DF, DAILY
     Dates: start: 20220818, end: 20220915
  6. NAPROXEN [Concomitant]
     Active Substance: NAPROXEN
     Indication: Pain
     Dosage: 1 DF, 2X/DAY (WHEN REQUIRED FOR PAIN, WITH FOOD)
     Dates: start: 20220818, end: 20220915
  7. NYSTATIN [Concomitant]
     Active Substance: NYSTATIN
     Dosage: 1 ML, 4X/DAY (AFTER FOOD)
     Dates: start: 20220928

REACTIONS (2)
  - Swollen tongue [Recovering/Resolving]
  - Rash [Recovering/Resolving]

NARRATIVE: CASE EVENT DATE: 20220928
